FAERS Safety Report 7425814-5 (Version None)
Quarter: 2011Q2

REPORT INFORMATION
  Report Type: 
  Country: None (occurrence: None)
  Receive Date: 20110420
  Receipt Date: 20110407
  Transmission Date: 20111010
  Serious: Yes (Hospitalization)
  Sender: FDA-Public Use
  Company Number: US-JNJFOC-20110401103

PATIENT
  Sex: Female
  Weight: 68 kg

DRUGS (3)
  1. IBUPROFEN [Suspect]
     Indication: PRODUCT USED FOR UNKNOWN INDICATION
     Route: 048
  2. MS CONTIN [Suspect]
     Indication: PRODUCT USED FOR UNKNOWN INDICATION
  3. INVESTIGATIONAL DRUG [Suspect]
     Indication: IMMUNISATION
     Route: 030

REACTIONS (2)
  - UNRESPONSIVE TO STIMULI [None]
  - MULTIPLE DRUG OVERDOSE [None]
